FAERS Safety Report 19584744 (Version 1)
Quarter: 2021Q3

REPORT INFORMATION
  Report Type: Spontaneous
  Country: US (occurrence: US)
  Receive Date: 20210720
  Receipt Date: 20210720
  Transmission Date: 20211014
  Serious: Yes (Hospitalization)
  Sender: FDA-Public Use
  Company Number: US-FERRINGPH-2021FE04495

PATIENT
  Age: 15 Year
  Sex: Female
  Weight: 63.5 kg

DRUGS (7)
  1. DDAVP [Suspect]
     Active Substance: DESMOPRESSIN ACETATE
     Dosage: AS NEEDED 2?3 SPRAYS BEFORE BEDTIME THEN AS NEEDED TO BREAK THROUGH THE DAY
     Route: 045
  2. DDAVP [Suspect]
     Active Substance: DESMOPRESSIN ACETATE
     Indication: DIABETES INSIPIDUS
     Dosage: 2 SPRAYS NASAL 3 TIMES DAILY
     Route: 045
     Dates: start: 2009
  3. DDAVP [Suspect]
     Active Substance: DESMOPRESSIN ACETATE
     Dosage: 1 SPRAY DAILY AS NEEDED FOR INCREASED URINATION
     Route: 045
  4. DDAVP [Suspect]
     Active Substance: DESMOPRESSIN ACETATE
     Dosage: 1 PUFF AT BEDTIME/ADDITONAL 1 PUFF AT DAYTIME ON DEMAND
     Route: 045
  5. DDAVP [Suspect]
     Active Substance: DESMOPRESSIN ACETATE
     Dosage: 2 SPRAYS TWICE DAILY
     Route: 045
  6. NUTROPIN AQ NUSPIN [Concomitant]
     Active Substance: SOMATROPIN
     Indication: GROWTH HORMONE DEFICIENCY
     Dosage: 1 MG, 1 TIME DAILY AT BEDTIME
     Route: 058
  7. DDAVP [Suspect]
     Active Substance: DESMOPRESSIN ACETATE
     Dosage: 2 PUFFS IN THE MORNING AND EVENINGS
     Route: 045

REACTIONS (5)
  - Treatment noncompliance [Recovered/Resolved]
  - Hyponatraemia [Recovered/Resolved]
  - Recalled product administered [Recovered/Resolved]
  - Dehydration [Recovered/Resolved]
  - Intentional overdose [Recovered/Resolved]

NARRATIVE: CASE EVENT DATE: 20190701
